FAERS Safety Report 10628961 (Version 2)
Quarter: 2016Q1

REPORT INFORMATION
  Report Type: Spontaneous
  Country: US (occurrence: US)
  Receive Date: 20141205
  Receipt Date: 20160215
  Transmission Date: 20160525
  Serious: No
  Sender: FDA-Public Use
  Company Number: US-BRISTOL-MYERS SQUIBB COMPANY-21442884

PATIENT
  Sex: Female
  Weight: 96.14 kg

DRUGS (1)
  1. NULOJIX [Suspect]
     Active Substance: BELATACEPT
     Indication: RENAL TRANSPLANT
     Dosage: LAST DOSE ON 03SEP2014
     Route: 065
     Dates: start: 201210

REACTIONS (1)
  - Maternal exposure during pregnancy [Unknown]
